FAERS Safety Report 21728153 (Version 3)
Quarter: 2023Q4

REPORT INFORMATION
  Report Type: Spontaneous
  Country: US (occurrence: US)
  Receive Date: 20221214
  Receipt Date: 20231004
  Transmission Date: 20240109
  Serious: Yes (Death, Other)
  Sender: FDA-Public Use
  Company Number: US-BRISTOL-MYERS SQUIBB COMPANY-2022-152986

PATIENT
  Age: 84 Year
  Sex: Male

DRUGS (4)
  1. SPRYCEL [Suspect]
     Active Substance: DASATINIB
     Indication: Chronic myeloid leukaemia
     Route: 048
     Dates: start: 20140407, end: 20221202
  2. ATORVASTATIN [Concomitant]
     Active Substance: ATORVASTATIN
     Indication: Hyperlipidaemia
     Route: 048
     Dates: start: 20190531
  3. AMIODARONE [Concomitant]
     Active Substance: AMIODARONE
     Indication: Atrial fibrillation
     Route: 048
  4. SILDENAFIL [Concomitant]
     Active Substance: SILDENAFIL
     Indication: Pulmonary hypertension
     Route: 048
     Dates: start: 20200527

REACTIONS (18)
  - Pneumonia [Fatal]
  - Pleural effusion [Unknown]
  - Cardiac failure congestive [Fatal]
  - Acute kidney injury [Fatal]
  - Acute respiratory failure [Fatal]
  - Off label use [Unknown]
  - Arrhythmia [Unknown]
  - Pulmonary hypertension [Unknown]
  - Atelectasis [Unknown]
  - Scar [Unknown]
  - Chronic obstructive pulmonary disease [Unknown]
  - Cardiomegaly [Unknown]
  - Pleural calcification [Unknown]
  - Exposure to chemical pollution [Unknown]
  - Pulmonary calcification [Unknown]
  - Arteriosclerosis [Unknown]
  - Chronic kidney disease [Unknown]
  - Pulmonary oedema [Unknown]
